FAERS Safety Report 24972305 (Version 2)
Quarter: 2025Q1

REPORT INFORMATION
  Report Type: Report from Study
  Country: US (occurrence: US)
  Receive Date: 20250214
  Receipt Date: 20250324
  Transmission Date: 20250409
  Serious: Yes (Hospitalization)
  Sender: ABBVIE
  Company Number: US-ABBVIE-6128693

PATIENT
  Age: 53 Year
  Sex: Female

DRUGS (1)
  1. HUMIRA [Suspect]
     Active Substance: ADALIMUMAB
     Indication: Psoriatic arthropathy
     Route: 058
     Dates: start: 20241102

REACTIONS (5)
  - Immune thrombocytopenia [Unknown]
  - Viral infection [Recovering/Resolving]
  - Vomiting [Not Recovered/Not Resolved]
  - Viral diarrhoea [Unknown]
  - Coagulopathy [Unknown]
